FAERS Safety Report 7314474-X (Version None)
Quarter: 2011Q1

REPORT INFORMATION
  Report Type: 
  Country: None (occurrence: None)
  Receive Date: 20110225
  Receipt Date: 20101006
  Transmission Date: 20110831
  Serious: No
  Sender: FDA-Public Use
  Company Number: US-MYLANLABS-2010S1016486

PATIENT
  Age: 16 Year
  Sex: Female
  Weight: 54.43 kg

DRUGS (2)
  1. AMNESTEEM [Suspect]
     Indication: ACNE
     Dates: end: 20100101
  2. AMNESTEEM [Suspect]
     Dates: start: 20100101

REACTIONS (3)
  - CHEST PAIN [None]
  - ABDOMINAL PAIN UPPER [None]
  - GASTROENTERITIS VIRAL [None]
